FAERS Safety Report 12072706 (Version 2)
Quarter: 2016Q1

REPORT INFORMATION
  Report Type: Spontaneous
  Country: US (occurrence: US)
  Receive Date: 20160212
  Receipt Date: 20160321
  Transmission Date: 20160526
  Serious: Yes (Hospitalization, Disabling)
  Sender: FDA-Public Use
  Company Number: US-PFIZER INC-2016070664

PATIENT
  Age: 52 Year
  Sex: Female

DRUGS (28)
  1. ZOLOFT [Suspect]
     Active Substance: SERTRALINE HYDROCHLORIDE
     Dosage: 200 MG, 1X/DAY
     Route: 048
  2. PROAIR HFA [Concomitant]
     Active Substance: ALBUTEROL SULFATE
     Dosage: 108 UG, AS NEEDED (INHALE 1 PUFF INTO THE LUNGS EVERY FOUR HOURS)
  3. VENTOLIN HFA [Concomitant]
     Active Substance: ALBUTEROL SULFATE
     Dosage: 108 UG, AS NEEDED (INHALE 1 PUFF INTO THE LUNGS EVERY FOUR HOURS)
  4. FLEXERIL [Concomitant]
     Active Substance: CYCLOBENZAPRINE HYDROCHLORIDE
     Dosage: 10 MG, 3X/DAY
     Route: 048
  5. ATARAX [Concomitant]
     Active Substance: HYDROXYZINE\HYDROXYZINE HYDROCHLORIDE
     Indication: PRURITUS
     Dosage: 25 MG, AS NEEDED (TAKE ONE TABLET BY MOUTH EVERY 6 HOURS)
  6. LOPRESSOR [Concomitant]
     Active Substance: METOPROLOL TARTRATE
     Dosage: 100 MG, 2X/DAY
     Route: 048
  7. TOPAMAX [Concomitant]
     Active Substance: TOPIRAMATE
     Dosage: 50 MG, 1X/DAY
     Route: 048
  8. DESYREL [Concomitant]
     Active Substance: TRAZODONE HYDROCHLORIDE
     Indication: SLEEP DISORDER
     Dosage: 50 MG, 1X/DAY (1-3 PILLS)
  9. NITROSTAT [Suspect]
     Active Substance: NITROGLYCERIN
     Indication: CHEST PAIN
     Dosage: 0.4 MG, AS NEEDED (: PLACE 1 TABLE UNDER THE TONGUE EVERY 5 MINUTES)
     Route: 060
  10. PROAIR HFA [Concomitant]
     Active Substance: ALBUTEROL SULFATE
     Dosage: 108 UG, AS NEEDED (INHALE 2 PUFFS INTO THE LUNGS EVERY FOUR HOURS)
     Route: 045
  11. BIOTIN [Concomitant]
     Active Substance: BIOTIN
     Dosage: 1 MG, 1X/DAY (EVERY MORNING)
     Route: 048
  12. KEPPRA [Concomitant]
     Active Substance: LEVETIRACETAM
     Dosage: 1500 MG, UNK (TAKE ONE TAB IN THE MORNING AND 2 TABS IN THE EVENING)
  13. MYCOSTATIN [Concomitant]
     Active Substance: NYSTATIN
     Dosage: 100000 UNK, 2X/DAY (UNIT/GM)
     Route: 061
  14. PRILOSEC [Concomitant]
     Active Substance: OMEPRAZOLE MAGNESIUM
     Dosage: 20 MG, DAILY (BEFORE BREAKFAST)
  15. ZOFRAN [Concomitant]
     Active Substance: ONDANSETRON HYDROCHLORIDE
     Indication: VOMITING
  16. TYLENOL [Concomitant]
     Active Substance: ACETAMINOPHEN
     Dosage: 650 MG, AS NEEDED (EVERY 4 HOURS AS NEEDED)
  17. LIPITOR [Suspect]
     Active Substance: ATORVASTATIN CALCIUM
     Dosage: 80 MG, 1X/DAY
     Route: 048
  18. VASOTEC [Concomitant]
     Active Substance: ENALAPRIL MALEATE
     Dosage: 20 MG, 2X/DAY
     Route: 048
  19. ZOFRAN [Concomitant]
     Active Substance: ONDANSETRON HYDROCHLORIDE
     Indication: NAUSEA
     Dosage: 4 MG, AS NEEDED (EVERY EIGHT HOURS)
     Route: 048
  20. HYDROCHLOROTHIAZIDE. [Concomitant]
     Active Substance: HYDROCHLOROTHIAZIDE
     Dosage: 25 MG, 1X/DAY
     Route: 048
  21. LOTRIMIN [Concomitant]
     Active Substance: CLOTRIMAZOLE
     Dosage: 1 %, 2X/DAY
     Route: 061
  22. DILACOR XR [Concomitant]
     Active Substance: DILTIAZEM HYDROCHLORIDE
     Dosage: 180 MG, 2X/DAY
     Route: 048
  23. VENTOLIN HFA [Concomitant]
     Active Substance: ALBUTEROL SULFATE
     Indication: DYSPNOEA
     Dosage: 108 UG, AS NEEDED (INHALE 2 PUFFS INTO THE LUNGS EVERY FOUR HOURS)
  24. CATAPRES [Concomitant]
     Active Substance: CLONIDINE HYDROCHLORIDE
     Dosage: 0.1 MG, 1X/DAY
     Route: 048
  25. FISH OIL [Concomitant]
     Active Substance: FISH OIL
     Dosage: 1000 MG, DAILY
  26. K-DUR [Concomitant]
     Active Substance: POTASSIUM CHLORIDE
     Dosage: 20 MEQ, 3X/DAY (WITH MEALS)
     Route: 048
  27. KLOR-CON [Concomitant]
     Active Substance: POTASSIUM CHLORIDE
     Dosage: 20 MEQ, 3X/DAY (WITH MEALS)
     Route: 048
  28. KENALOG [Concomitant]
     Active Substance: TRIAMCINOLONE ACETONIDE
     Dosage: 0.1 %, 2X/DAY (AM AND PM TO THE SCALP, KNEES AND LOWER EXTREMITIES)
     Route: 061

REACTIONS (2)
  - Renal disorder [Unknown]
  - Intracranial aneurysm [Unknown]

NARRATIVE: CASE EVENT DATE: 20160111
